FAERS Safety Report 15141350 (Version 1)
Quarter: 2018Q3

REPORT INFORMATION
  Report Type: Spontaneous
  Country: US (occurrence: US)
  Receive Date: 20180713
  Receipt Date: 20180713
  Transmission Date: 20181010
  Serious: No
  Sender: FDA-Public Use
  Company Number: US-MYLANLABS-2018M1049567

PATIENT
  Sex: Female
  Weight: 65 kg

DRUGS (1)
  1. AUBRA [Suspect]
     Active Substance: ETHINYL ESTRADIOL\LEVONORGESTREL
     Indication: CONTRACEPTION
     Dosage: UNK
     Route: 048
     Dates: start: 2016

REACTIONS (3)
  - Progesterone abnormal [Recovering/Resolving]
  - Mood swings [Recovering/Resolving]
  - Weight increased [Recovering/Resolving]
